FAERS Safety Report 24451578 (Version 3)
Quarter: 2024Q4

REPORT INFORMATION
  Report Type: Report from Study
  Country: MX (occurrence: MX)
  Receive Date: 20241017
  Receipt Date: 20241203
  Transmission Date: 20250114
  Serious: Yes (Hospitalization)
  Sender: NOVARTIS
  Company Number: MX-002147023-NVSC2024MX166873

PATIENT
  Age: 69 Year
  Sex: Female
  Weight: 56 kg

DRUGS (9)
  1. KISQALI [Suspect]
     Active Substance: RIBOCICLIB
     Indication: Breast cancer
     Dosage: 200 MG, TID
     Route: 048
     Dates: start: 202402
  2. KISQALI [Suspect]
     Active Substance: RIBOCICLIB
     Dosage: 3 OF 200 MG (600 MG), QD
     Route: 048
     Dates: start: 202404, end: 20240509
  3. KISQALI [Suspect]
     Active Substance: RIBOCICLIB
     Dosage: UNK
     Route: 065
     Dates: start: 202406
  4. KISQALI [Suspect]
     Active Substance: RIBOCICLIB
     Dosage: 3 DOSAGE FORM, QD (3 OF 200 MG (600 MG), QD)
     Route: 048
     Dates: start: 20240808
  5. FULVESTRANT [Suspect]
     Active Substance: FULVESTRANT
     Indication: Breast cancer
     Dosage: 2 UNITS EVERY 15 DAYS
     Route: 030
     Dates: start: 202402, end: 202405
  6. FULVESTRANT [Suspect]
     Active Substance: FULVESTRANT
     Dosage: 2 UNK, QMO
     Route: 030
     Dates: start: 20240808, end: 202409
  7. LOSARTAN [Concomitant]
     Active Substance: LOSARTAN
     Indication: Hypertension
     Dosage: 50 MG, Q12H (1 X 50 MG), TABLET
     Route: 048
     Dates: start: 2012
  8. PROPAFENONE [Concomitant]
     Active Substance: PROPAFENONE
     Indication: Myocardial ischaemia
     Dosage: 1 DOSAGE FORM, Q12H (150 MG), TABLET
     Route: 048
     Dates: start: 2010
  9. ASPIRIN [Concomitant]
     Active Substance: ASPIRIN
     Indication: Myocardial ischaemia
     Dosage: 1 DOSAGE FORM, Q24H (100 MG), TABLET
     Route: 048
     Dates: start: 2010

REACTIONS (33)
  - Gastrointestinal disorder [Recovered/Resolved]
  - Chest pain [Unknown]
  - Cough [Unknown]
  - Back pain [Unknown]
  - Fatigue [Not Recovered/Not Resolved]
  - Pleural effusion [Recovered/Resolved]
  - Food intolerance [Unknown]
  - Pigmentation disorder [Not Recovered/Not Resolved]
  - Skin burning sensation [Not Recovered/Not Resolved]
  - Dermatitis [Not Recovered/Not Resolved]
  - Pruritus [Recovering/Resolving]
  - Nausea [Not Recovered/Not Resolved]
  - Hiccups [Not Recovered/Not Resolved]
  - Decreased appetite [Not Recovered/Not Resolved]
  - Pain [Not Recovered/Not Resolved]
  - Acne [Not Recovered/Not Resolved]
  - Rash [Unknown]
  - Eye irritation [Not Recovered/Not Resolved]
  - Pyrexia [Recovered/Resolved]
  - Vocal cord paralysis [Unknown]
  - Rhinorrhoea [Not Recovered/Not Resolved]
  - Eye pruritus [Not Recovered/Not Resolved]
  - Scratch [Not Recovered/Not Resolved]
  - Dry skin [Not Recovered/Not Resolved]
  - Blood cholesterol increased [Unknown]
  - Blepharal pigmentation [Unknown]
  - Skin discolouration [Unknown]
  - Inappropriate schedule of product administration [Unknown]
  - Injection site pain [Recovered/Resolved]
  - Gait disturbance [Recovered/Resolved]
  - Dyspnoea [Recovered/Resolved]
  - Feeling of despair [Recovering/Resolving]
  - Insomnia [Recovered/Resolved]

NARRATIVE: CASE EVENT DATE: 20240201
